FAERS Safety Report 7675855-8 (Version None)
Quarter: 2011Q3

REPORT INFORMATION
  Report Type: 
  Country: None (occurrence: None)
  Receive Date: 20110811
  Receipt Date: 20110802
  Transmission Date: 20111222
  Serious: Yes (Hospitalization, Disabling)
  Sender: FDA-Public Use
  Company Number: JP-AMGEN-JPNCT2010004059

PATIENT
  Age: 63 Year
  Sex: Male
  Weight: 63 kg

DRUGS (21)
  1. LEUCOVORIN CALCIUM [Concomitant]
     Indication: COLORECTAL CANCER
     Route: 041
     Dates: start: 20101019
  2. LEUCOVORIN CALCIUM [Concomitant]
     Route: 041
     Dates: start: 20101019, end: 20101021
  3. ATROPINE SULFATE [Concomitant]
     Dosage: UNK
     Route: 042
  4. DAIKENTYUTO [Concomitant]
     Indication: PROPHYLAXIS
     Route: 048
  5. MINOCYCLINE HCL [Concomitant]
     Dosage: UNK
     Route: 048
  6. PASTARON LOTION [Concomitant]
     Dosage: UNK
     Route: 062
  7. PANITUMUMAB [Suspect]
     Dosage: 6 MG/KG, Q2WK
     Route: 041
     Dates: start: 20101221, end: 20110104
  8. GRANISETRON [Concomitant]
     Dosage: UNK
     Route: 042
  9. ASPIRIN [Concomitant]
     Dosage: UNK
     Route: 048
  10. IRINOTECAN HCL [Suspect]
     Indication: COLORECTAL CANCER
     Route: 041
     Dates: start: 20101019, end: 20101021
  11. RANITIDINE [Concomitant]
     Indication: PROPHYLAXIS AGAINST GASTROINTESTINAL ULCER
     Dosage: UNK
     Route: 048
  12. CORTICOSTEROIDS [Concomitant]
     Indication: PROPHYLAXIS
     Dosage: UNK
     Route: 065
  13. PANITUMUMAB [Suspect]
     Indication: COLORECTAL CANCER
     Dosage: 6 MG/KG, Q2WK
     Route: 041
     Dates: start: 20101019, end: 20101102
  14. GFO [Concomitant]
     Route: 048
  15. MAGNESIUM OXIDE [Concomitant]
     Indication: PROPHYLAXIS
     Dosage: UNK
     Route: 048
  16. FLUOROURACIL [Suspect]
     Indication: COLORECTAL CANCER
     Route: 041
     Dates: start: 20101019, end: 20101021
  17. DEXAMETHASONE SODIUM PHOSPHATE [Concomitant]
     Dosage: UNK
     Route: 042
  18. JUZENTAIHOTO [Concomitant]
     Route: 048
  19. MUCOSTA [Concomitant]
     Indication: PROPHYLAXIS AGAINST GASTROINTESTINAL ULCER
     Dosage: UNK
     Route: 048
  20. PRIMPERAN TAB [Concomitant]
     Dosage: UNK
     Route: 042
  21. WARFARIN SODIUM [Concomitant]
     Dosage: UNK
     Route: 048

REACTIONS (7)
  - MELAENA [None]
  - DRY SKIN [None]
  - ACNE [None]
  - DECREASED APPETITE [None]
  - NEUROPATHY PERIPHERAL [None]
  - STOMATITIS [None]
  - PARONYCHIA [None]
